FAERS Safety Report 11872328 (Version 1)
Quarter: 2015Q4

REPORT INFORMATION
  Report Type: Spontaneous
  Country: US (occurrence: None)
  Receive Date: 20151224
  Receipt Date: 20151224
  Transmission Date: 20160305
  Serious: Yes (Disabling)
  Sender: FDA-Public Use
  Company Number: None

PATIENT
  Age: 30 Year
  Sex: Male
  Weight: 115.21 kg

DRUGS (4)
  1. V8 HEALTHY GREENS [Concomitant]
  2. CIPROFLOXACIN 250MG RX: 88537, PRINT ID #: 0818453-1396 [Suspect]
     Active Substance: CIPROFLOXACIN
     Indication: URINARY TRACT INFECTION
     Dosage: 8 PILLS
     Route: 048
     Dates: start: 20151215, end: 20151221
  3. MEN^S ONCE DAILY [Concomitant]
  4. BETA CAROTENE [Concomitant]

REACTIONS (9)
  - Skin burning sensation [None]
  - Decreased appetite [None]
  - Dizziness [None]
  - Muscle spasms [None]
  - Colour blindness [None]
  - Visual impairment [None]
  - Photopsia [None]
  - Vitreous floaters [None]
  - Depression [None]

NARRATIVE: CASE EVENT DATE: 20151215
